FAERS Safety Report 9147304 (Version 2)
Quarter: 2013Q1

REPORT INFORMATION
  Report Type: Spontaneous
  Country: FR (occurrence: None)
  Receive Date: 20130226
  Receipt Date: 20130301
  Transmission Date: 20140127
  Serious: Yes (Death)
  Sender: FDA-Public Use
  Company Number: 1611144

PATIENT
  Age: 75 Year
  Sex: Female
  Weight: 59 kg

DRUGS (8)
  1. OXALIPLATIN [Suspect]
     Indication: NEOPLASM MALIGNANT
     Dosage: 85 MG/M2 MILLIGRAMS(S) / SQ. METER (UNKNOWN)?INTRAVENOUS (NOT OTHERWISE SPECIFIED)?08/16/2012  -  08/30/2012  (UNKNONW)
     Route: 042
     Dates: start: 20120816, end: 20120830
  2. (RALTITREXED DISODIUM) [Suspect]
     Indication: NEOPLASM MALIGNANT
     Route: 042
     Dates: start: 20120816, end: 20120830
  3. BEVACIZUMAB [Suspect]
     Indication: NEOPLASM MALIGNANT
     Dosage: 5 MG/KG MILLIGRAM(S) / KILOGRAM  (UNKNOWN)?INTRAVENOUS  (NOT OTHERWISE SPECIFIED)?09/13/2012  -  09/13/2012  (UNKNOWN)
     Route: 042
     Dates: start: 20120913, end: 20120913
  4. LERCANIDIPINE [Concomitant]
  5. INDAPAMIDE [Concomitant]
  6. MEDIATENSYL) [Concomitant]
  7. VALSARTAN [Concomitant]
  8. ALLOPURINOL [Concomitant]

REACTIONS (2)
  - Diarrhoea [None]
  - Aplasia [None]
